FAERS Safety Report 16679956 (Version 2)
Quarter: 2019Q3

REPORT INFORMATION
  Report Type: Spontaneous
  Country: FR (occurrence: FR)
  Receive Date: 20190807
  Receipt Date: 20190914
  Transmission Date: 20191004
  Serious: Yes (Death, Other)
  Sender: FDA-Public Use
  Company Number: FR-BRISTOL-MYERS SQUIBB COMPANY-BMS-2019-074745

PATIENT
  Age: 28 Year
  Sex: Male
  Weight: 59 kg

DRUGS (1)
  1. OPDIVO [Suspect]
     Active Substance: NIVOLUMAB
     Indication: THYMOMA MALIGNANT
     Route: 042
     Dates: start: 20190708, end: 20190708

REACTIONS (3)
  - Myocarditis [Fatal]
  - Intentional product use issue [Unknown]
  - Myositis [Fatal]

NARRATIVE: CASE EVENT DATE: 201907
